FAERS Safety Report 10357727 (Version 1)
Quarter: 2014Q3

REPORT INFORMATION
  Report Type: Report from Study
  Country: JP (occurrence: JP)
  Receive Date: 20140801
  Receipt Date: 20140801
  Transmission Date: 20150326
  Serious: No
  Sender: FDA-Public Use
  Company Number: PHHY2013JP159224

PATIENT
  Age: 58 Year
  Sex: Female

DRUGS (7)
  1. ALESION [Concomitant]
     Active Substance: EPINASTINE HYDROCHLORIDE
     Dosage: UNK UKN, UNK
  2. NEXIUM [Concomitant]
     Active Substance: ESOMEPRAZOLE MAGNESIUM
     Dosage: UNK UKN, UNK
  3. TASIGNA [Suspect]
     Active Substance: NILOTINIB
     Dosage: 600 MG, DAILY
     Dates: start: 201208
  4. DEPAS [Concomitant]
     Active Substance: ETIZOLAM
     Dosage: UNK UKN, UNK
  5. BIOFERMIN [Concomitant]
     Active Substance: BACILLUS SUBTILIS\LACTOBACILLUS ACIDOPHILUS\STREPTOCOCCUS FAECAIS
     Dosage: UNK UKN, UNK
  6. TEPRENONE [Concomitant]
     Active Substance: TEPRENONE
     Dosage: UNK UKN, UNK
  7. DILTIAZEM HYDROCHLORIDE R [Concomitant]
     Active Substance: DILTIAZEM HYDROCHLORIDE
     Dosage: UNK UKN, UNK

REACTIONS (5)
  - Rash [Unknown]
  - Pruritus [Unknown]
  - Chest pain [Unknown]
  - Alopecia [Unknown]
  - Blood glucose increased [Unknown]
